FAERS Safety Report 17909224 (Version 1)
Quarter: 2020Q2

REPORT INFORMATION
  Report Type: Spontaneous
  Country: RU (occurrence: RU)
  Receive Date: 20200617
  Receipt Date: 20200617
  Transmission Date: 20200714
  Serious: Yes (Other)
  Sender: FDA-Public Use
  Company Number: RU-ASTRAZENECA-2020SE76472

PATIENT
  Age: 5 Year

DRUGS (7)
  1. PULMICORT TURBUHALER [Suspect]
     Active Substance: BUDESONIDE
     Indication: SUBGLOTTIC LARYNGITIS
     Route: 055
     Dates: start: 202005
  2. HERBAL MUCOLYTICS [Concomitant]
  3. CETIRIZINE [Concomitant]
     Active Substance: CETIRIZINE HYDROCHLORIDE
  4. CARBOCISTEINE [Concomitant]
     Active Substance: CARBOCYSTEINE
  5. HEDELIX/PROSPAN [Concomitant]
  6. GLUCOCORTICOSTEROID [Concomitant]
     Route: 030
  7. PULMICORT TURBUHALER [Suspect]
     Active Substance: BUDESONIDE
     Indication: LARYNGOTRACHEITIS OBSTRUCTIVE
     Route: 055
     Dates: start: 202005

REACTIONS (3)
  - COVID-19 pneumonia [Recovered/Resolved]
  - Off label use [Recovered/Resolved]
  - Bronchitis [Recovered/Resolved]

NARRATIVE: CASE EVENT DATE: 2020
